FAERS Safety Report 5116997-0 (Version None)
Quarter: 2006Q3

REPORT INFORMATION
  Report Type: 
  Country: None (occurrence: None)
  Receive Date: 20060928
  Receipt Date: 20060629
  Transmission Date: 20061208
  Serious: Yes (Disabling)
  Sender: FDA-Public Use
  Company Number: AU-MERCK-0606AUS00208

PATIENT
  Age: 46 Year
  Sex: Male
  Weight: 96 kg

DRUGS (4)
  1. ZETIA [Suspect]
     Indication: BLOOD CHOLESTEROL INCREASED
     Route: 065
     Dates: start: 20060101, end: 20060527
  2. HYDROCHLOROTHIAZIDE AND IRBESARTAN [Concomitant]
     Route: 065
  3. PERINDOPRIL ERBUMINE [Concomitant]
     Route: 065
  4. ASPIRIN [Concomitant]
     Route: 065

REACTIONS (6)
  - BLOOD CREATINE PHOSPHOKINASE INCREASED [None]
  - CHEST PAIN [None]
  - DYSPNOEA [None]
  - MUSCULAR WEAKNESS [None]
  - MUSCULOSKELETAL STIFFNESS [None]
  - VISUAL DISTURBANCE [None]
